FAERS Safety Report 4389937-X (Version None)
Quarter: 2004Q2

REPORT INFORMATION
  Report Type: 
  Country: None (occurrence: None)
  Receive Date: 20040628
  Receipt Date: 20040616
  Transmission Date: 20050107
  Serious: No
  Sender: FDA-Public Use
  Company Number: 04P-163-0264209-00

PATIENT
  Sex: Male

DRUGS (6)
  1. ULTANE [Suspect]
     Indication: ANAESTHESIA
     Dosage: ONCE, INHALATION
     Dates: start: 20040101, end: 20040101
  2. FENTANYL [Concomitant]
  3. PETHIDINE HYDROCHLORIDE [Concomitant]
  4. MIDAZOLAM HYDROCHLORIDE [Concomitant]
  5. NITROUS OXIDE [Concomitant]
  6. OXYGEN [Concomitant]

REACTIONS (4)
  - OBSTRUCTIVE AIRWAYS DISORDER [None]
  - POST PROCEDURAL COMPLICATION [None]
  - PULMONARY HAEMORRHAGE [None]
  - PULMONARY OEDEMA [None]
